FAERS Safety Report 4829468-3 (Version None)
Quarter: 2005Q4

REPORT INFORMATION
  Report Type: 
  Country: None (occurrence: None)
  Receive Date: 20051028
  Receipt Date: 20040908
  Transmission Date: 20060501
  Serious: Yes (Hospitalization)
  Sender: FDA-Public Use
  Company Number: US013712

PATIENT
  Sex: Male

DRUGS (2)
  1. PROVIGIL [Suspect]
     Indication: SLEEP APNOEA SYNDROME
     Dates: start: 20040701, end: 20040801
  2. LOTREL [Concomitant]

REACTIONS (1)
  - MANIA [None]
